FAERS Safety Report 17810528 (Version 1)
Quarter: 2020Q2

REPORT INFORMATION
  Report Type: Report from Study
  Country: IT (occurrence: IT)
  Receive Date: 20200521
  Receipt Date: 20200521
  Transmission Date: 20200714
  Serious: Yes (Other)
  Sender: FDA-Public Use
  Company Number: IT-AUROBINDO-AUR-APL-2020-019654

PATIENT
  Age: 68 Year
  Sex: Female

DRUGS (11)
  1. OXYCODONE [Interacting]
     Active Substance: OXYCODONE
     Indication: FIBROMYALGIA
  2. PREGABALIN. [Interacting]
     Active Substance: PREGABALIN
     Indication: PAIN
  3. BEDROCAN [Interacting]
     Active Substance: CANNABIS SATIVA FLOWERING TOP
     Indication: FIBROMYALGIA
     Dosage: 100 MILLIGRAM, ONCE A DAY
     Route: 048
  4. PREGABALIN. [Interacting]
     Active Substance: PREGABALIN
     Indication: PRODUCT USED FOR UNKNOWN INDICATION
     Dosage: UNK
     Route: 065
  5. PREGABALIN. [Interacting]
     Active Substance: PREGABALIN
     Indication: SPINAL STENOSIS
  6. BEDROCAN [Interacting]
     Active Substance: CANNABIS SATIVA FLOWERING TOP
     Indication: SPINAL STENOSIS
  7. OXYCODONE [Interacting]
     Active Substance: OXYCODONE
     Indication: SPINAL STENOSIS
  8. OXYCODONE [Interacting]
     Active Substance: OXYCODONE
     Indication: PAIN
  9. PREGABALIN. [Interacting]
     Active Substance: PREGABALIN
     Indication: FIBROMYALGIA
  10. BEDROCAN [Interacting]
     Active Substance: CANNABIS SATIVA FLOWERING TOP
     Indication: PAIN
  11. OXYCODONE [Suspect]
     Active Substance: OXYCODONE
     Indication: PRODUCT USED FOR UNKNOWN INDICATION
     Dosage: UNK
     Route: 065

REACTIONS (9)
  - Drug interaction [Unknown]
  - Tachyarrhythmia [Recovered/Resolved]
  - Illusion [Recovered/Resolved]
  - Accidental overdose [Unknown]
  - Feeling abnormal [Recovered/Resolved]
  - Negative thoughts [Recovered/Resolved]
  - Catastrophic reaction [Recovered/Resolved]
  - Hypertension [Recovered/Resolved]
  - Morbid thoughts [Recovered/Resolved]
